FAERS Safety Report 12212734 (Version 1)
Quarter: 2016Q1

REPORT INFORMATION
  Report Type: Spontaneous
  Country: JP (occurrence: JP)
  Receive Date: 20160328
  Receipt Date: 20160328
  Transmission Date: 20160526
  Serious: Yes (Other)
  Sender: FDA-Public Use
  Company Number: JP-ROCHE-1731796

PATIENT
  Age: 8 Decade
  Sex: Male
  Weight: 60 kg

DRUGS (21)
  1. XELODA [Suspect]
     Active Substance: CAPECITABINE
     Indication: RECTAL CANCER
     Route: 048
     Dates: start: 20150716, end: 20160121
  2. 5-FU [Concomitant]
     Active Substance: FLUOROURACIL
     Indication: RECTAL CANCER
     Route: 040
     Dates: start: 20150413, end: 201505
  3. CALCIUM LEVOFOLINATE [Concomitant]
     Active Substance: LEVOLEUCOVORIN CALCIUM
     Indication: RECTAL CANCER
     Route: 041
     Dates: start: 20150413, end: 201505
  4. VESICARE [Concomitant]
     Active Substance: SOLIFENACIN SUCCINATE
     Route: 048
     Dates: start: 201404
  5. ELPLAT [Concomitant]
     Active Substance: OXALIPLATIN
     Indication: RECTAL CANCER
     Route: 041
     Dates: start: 20150604, end: 20150625
  6. AVASTIN [Suspect]
     Active Substance: BEVACIZUMAB
     Indication: RECTAL CANCER
     Route: 041
     Dates: start: 20130912, end: 20140116
  7. IRINOTECAN HYDROCHLORIDE. [Concomitant]
     Active Substance: IRINOTECAN HYDROCHLORIDE
     Indication: RECTAL CANCER
     Route: 041
     Dates: start: 20150413, end: 201505
  8. NEXIUM [Concomitant]
     Active Substance: ESOMEPRAZOLE MAGNESIUM
     Route: 048
     Dates: start: 201404
  9. OXINORM (JAPAN) [Concomitant]
     Active Substance: OXYCODONE HYDROCHLORIDE
     Route: 048
     Dates: start: 201512
  10. LOXONIN [Concomitant]
     Active Substance: LOXOPROFEN SODIUM
     Route: 048
     Dates: start: 201404
  11. ELPLAT [Concomitant]
     Active Substance: OXALIPLATIN
     Indication: RECTAL CANCER
     Route: 041
     Dates: start: 20130912, end: 20140116
  12. RIVOTRIL [Concomitant]
     Active Substance: CLONAZEPAM
     Route: 048
     Dates: start: 201601
  13. AVASTIN [Suspect]
     Active Substance: BEVACIZUMAB
     Indication: RECTAL CANCER
     Route: 041
     Dates: start: 20150604, end: 20150625
  14. 5-FU [Concomitant]
     Active Substance: FLUOROURACIL
     Indication: RECTAL CANCER
     Route: 041
     Dates: start: 20150413, end: 201505
  15. XELODA [Suspect]
     Active Substance: CAPECITABINE
     Indication: RECTAL CANCER
     Route: 048
     Dates: start: 20130912, end: 20140116
  16. XELODA [Suspect]
     Active Substance: CAPECITABINE
     Indication: RECTAL CANCER
     Route: 048
     Dates: start: 20150604, end: 20150625
  17. AVASTIN [Suspect]
     Active Substance: BEVACIZUMAB
     Indication: RECTAL CANCER
     Route: 041
     Dates: start: 20150716, end: 20160121
  18. FLIVAS [Concomitant]
     Active Substance: NAFTOPIDIL
     Route: 048
     Dates: start: 201404
  19. AVASTIN [Suspect]
     Active Substance: BEVACIZUMAB
     Indication: RECTAL CANCER
     Route: 041
     Dates: start: 20150413, end: 201505
  20. FENTOS (JAPAN) [Concomitant]
     Route: 062
     Dates: start: 201512
  21. AMLODIN [Concomitant]
     Active Substance: AMLODIPINE BESYLATE
     Route: 048
     Dates: start: 201004

REACTIONS (3)
  - Colitis [Unknown]
  - Gastrointestinal perforation [Recovered/Resolved]
  - Diarrhoea [Recovering/Resolving]

NARRATIVE: CASE EVENT DATE: 201601
